FAERS Safety Report 19403464 (Version 2)
Quarter: 2021Q2

REPORT INFORMATION
  Report Type: Spontaneous
  Country: DE (occurrence: DE)
  Receive Date: 20210610
  Receipt Date: 20210616
  Transmission Date: 20210717
  Serious: Yes (Other)
  Sender: FDA-Public Use
  Company Number: NVSC2021DE127472

PATIENT
  Sex: Male

DRUGS (10)
  1. BEOVU [Suspect]
     Active Substance: BROLUCIZUMAB-DBLL
     Dosage: 6 MG (0.05 ML 10X)
     Route: 031
     Dates: start: 20210415
  2. BEOVU [Suspect]
     Active Substance: BROLUCIZUMAB-DBLL
     Dosage: 6 MG (0.05 ML 10X)
     Route: 031
     Dates: start: 20201014
  3. BEOVU [Suspect]
     Active Substance: BROLUCIZUMAB-DBLL
     Dosage: 6 MG (0.05 ML 10X)
     Route: 065
     Dates: start: 20210527
  4. BEOVU [Suspect]
     Active Substance: BROLUCIZUMAB-DBLL
     Dosage: 6 MG (0.05 ML 10X)
     Route: 031
     Dates: start: 20200724
  5. BEOVU [Suspect]
     Active Substance: BROLUCIZUMAB-DBLL
     Indication: NEOVASCULAR AGE-RELATED MACULAR DEGENERATION
     Dosage: 6 MG (0.05 ML 10X)
     Route: 031
     Dates: start: 20200629
  6. BEOVU [Suspect]
     Active Substance: BROLUCIZUMAB-DBLL
     Dosage: 6 MG (0.05 ML 10X)
     Route: 031
     Dates: start: 20200821
  7. BEOVU [Suspect]
     Active Substance: BROLUCIZUMAB-DBLL
     Dosage: 6 MG (0.05 ML 10X)
     Route: 031
     Dates: start: 20201202
  8. BEOVU [Suspect]
     Active Substance: BROLUCIZUMAB-DBLL
     Dosage: 6 MG (0.05 ML 10X)
     Route: 031
     Dates: start: 20210113
  9. BEOVU [Suspect]
     Active Substance: BROLUCIZUMAB-DBLL
     Dosage: 6 MG (0.05 ML 10X)
     Route: 031
     Dates: start: 20210318
  10. BEOVU [Suspect]
     Active Substance: BROLUCIZUMAB-DBLL
     Dosage: 6 MG (0.05 ML 10X)
     Route: 031
     Dates: start: 20210218

REACTIONS (1)
  - Retinal cyst [Recovering/Resolving]

NARRATIVE: CASE EVENT DATE: 20210415
